FAERS Safety Report 11099816 (Version 1)
Quarter: 2015Q2

REPORT INFORMATION
  Report Type: Spontaneous
  Country: US (occurrence: US)
  Receive Date: 20150508
  Receipt Date: 20150508
  Transmission Date: 20150821
  Serious: Yes (Other)
  Sender: FDA-Public Use
  Company Number: US-PFIZER INC-2015152769

PATIENT
  Age: 52 Year
  Sex: Female

DRUGS (1)
  1. ZIPRASIDONE HCL [Suspect]
     Active Substance: ZIPRASIDONE HYDROCHLORIDE
     Dosage: 20 MG, UNK
     Dates: start: 2014

REACTIONS (6)
  - Gastric cancer [Unknown]
  - Malaise [Unknown]
  - Chest injury [Unknown]
  - Gastritis [Unknown]
  - Dysplasia [Unknown]
  - Fatigue [Unknown]
